FAERS Safety Report 7107012-8 (Version None)
Quarter: 2010Q4

REPORT INFORMATION
  Report Type: 
  Country: None (occurrence: None)
  Receive Date: 20101116
  Receipt Date: 20101109
  Transmission Date: 20110411
  Serious: No
  Sender: FDA-Public Use
  Company Number: US-ABBOTT-10P-163-0684271-00

PATIENT
  Sex: Female

DRUGS (3)
  1. SIMCOR [Suspect]
     Indication: LOW DENSITY LIPOPROTEIN INCREASED
     Dates: start: 20101012, end: 20101102
  2. SIMCOR [Suspect]
     Dates: start: 20101108
  3. ASPIRIN [Concomitant]
     Indication: PRODUCT USED FOR UNKNOWN INDICATION

REACTIONS (3)
  - HYPERSENSITIVITY [None]
  - PRURITUS [None]
  - SKIN BURNING SENSATION [None]
